FAERS Safety Report 7141698-7 (Version None)
Quarter: 2010Q4

REPORT INFORMATION
  Report Type: 
  Country: None (occurrence: None)
  Receive Date: 20101207
  Receipt Date: 20101125
  Transmission Date: 20110411
  Serious: Yes (Hospitalization)
  Sender: FDA-Public Use
  Company Number: FR-SANOFI-AVENTIS-2010SA071661

PATIENT
  Age: 47 Year
  Sex: Male

DRUGS (11)
  1. ZOLPIDEM [Suspect]
     Indication: DEPRESSION
     Route: 048
     Dates: start: 20101010, end: 20101010
  2. ZOLPIDEM [Suspect]
     Indication: INTENTIONAL OVERDOSE
     Route: 048
     Dates: start: 20101010, end: 20101010
  3. ZOLPIDEM [Suspect]
     Route: 048
  4. ZOLPIDEM [Suspect]
     Route: 048
  5. LEXOMIL [Suspect]
     Indication: INTENTIONAL OVERDOSE
     Route: 048
     Dates: start: 20101010, end: 20101010
  6. XANAX [Suspect]
     Indication: DEPRESSION
     Route: 048
     Dates: start: 20101010, end: 20101010
  7. XANAX [Suspect]
     Indication: INTENTIONAL OVERDOSE
     Route: 048
     Dates: start: 20101010, end: 20101010
  8. XANAX [Suspect]
     Route: 048
  9. XANAX [Suspect]
     Route: 048
  10. STABLON [Concomitant]
     Indication: DEPRESSION
     Route: 065
  11. ZOLOFT [Concomitant]
     Indication: DEPRESSION
     Route: 065

REACTIONS (4)
  - COMA [None]
  - MULTIPLE DRUG OVERDOSE [None]
  - PNEUMONIA ASPIRATION [None]
  - RHABDOMYOLYSIS [None]
